FAERS Safety Report 18582891 (Version 1)
Quarter: 2020Q4

REPORT INFORMATION
  Report Type: Spontaneous
  Country: FR (occurrence: FR)
  Receive Date: 20201205
  Receipt Date: 20201205
  Transmission Date: 20210114
  Serious: Yes (Hospitalization)
  Sender: FDA-Public Use
  Company Number: NVSC2020FR319581

PATIENT
  Age: 46 Year
  Sex: Female

DRUGS (1)
  1. IOPIDINE [Suspect]
     Active Substance: APRACLONIDINE HYDROCHLORIDE
     Indication: GLAUCOMA
     Dosage: 3 DRP, QD (DROP (1/12 MILLILITRE)
     Route: 047
     Dates: start: 20190711, end: 20190712

REACTIONS (2)
  - Eye pain [Recovered/Resolved]
  - Anaphylactic shock [Recovered/Resolved]

NARRATIVE: CASE EVENT DATE: 20190711
